FAERS Safety Report 17917196 (Version 1)
Quarter: 2020Q2

REPORT INFORMATION
  Report Type: Spontaneous
  Country: IT (occurrence: IT)
  Receive Date: 20200619
  Receipt Date: 20200619
  Transmission Date: 20200714
  Serious: Yes (Death, Other)
  Sender: FDA-Public Use
  Company Number: IT-BIOVITRUM-2020IT3117

PATIENT
  Age: 65 Year
  Sex: Male

DRUGS (1)
  1. ANAKINRA [Suspect]
     Active Substance: ANAKINRA
     Indication: FAMILIAL MEDITERRANEAN FEVER

REACTIONS (4)
  - Sepsis [Unknown]
  - Death [Fatal]
  - Leukopenia [Unknown]
  - Condition aggravated [Unknown]
